FAERS Safety Report 6552419-0 (Version None)
Quarter: 2010Q1

REPORT INFORMATION
  Report Type: 
  Country: None (occurrence: None)
  Receive Date: 20100126
  Receipt Date: 20091208
  Transmission Date: 20100710
  Serious: Yes (Disabling, Other)
  Sender: FDA-Public Use
  Company Number: LU-ELI_LILLY_AND_COMPANY-LU201001003947

PATIENT
  Sex: Male

DRUGS (1)
  1. CYMBALTA [Suspect]
     Indication: MULTIPLE SCLEROSIS
     Dosage: UNK, UNKNOWN

REACTIONS (4)
  - ANXIETY [None]
  - HYPOKINESIA [None]
  - MUSCULOSKELETAL STIFFNESS [None]
  - OFF LABEL USE [None]
